FAERS Safety Report 6683422-8 (Version None)
Quarter: 2010Q2

REPORT INFORMATION
  Report Type: 
  Country: None (occurrence: None)
  Receive Date: 20100415
  Receipt Date: 20100401
  Transmission Date: 20101027
  Serious: Yes (Death, Hospitalization, Other)
  Sender: FDA-Public Use
  Company Number: US-ELI_LILLY_AND_COMPANY-US201004001555

PATIENT
  Age: 86 Year
  Sex: Female

DRUGS (3)
  1. FORTEO [Suspect]
     Indication: OSTEOPOROSIS
     Dosage: 20 UG, DAILY (1/D)
  2. OMEPRAZOLE [Concomitant]
     Indication: ABDOMINAL DISCOMFORT
  3. OXYGEN [Concomitant]
     Indication: DYSPNOEA

REACTIONS (10)
  - DEATH [None]
  - FALL [None]
  - FEELING HOT [None]
  - HOSPITALISATION [None]
  - ILL-DEFINED DISORDER [None]
  - NEOPLASM [None]
  - NIGHT SWEATS [None]
  - ORAL DISCOMFORT [None]
  - PAIN [None]
  - PARKINSON'S DISEASE [None]
